FAERS Safety Report 7058994-4 (Version None)
Quarter: 2010Q4

REPORT INFORMATION
  Report Type: 
  Country: None (occurrence: None)
  Receive Date: 20101025
  Receipt Date: 20101019
  Transmission Date: 20110411
  Serious: Yes (Hospitalization)
  Sender: FDA-Public Use
  Company Number: US-BIOGENIDEC-2010BI035766

PATIENT
  Age: 32 Year
  Sex: Female
  Weight: 70 kg

DRUGS (19)
  1. TYSABRI [Suspect]
     Indication: MULTIPLE SCLEROSIS
     Route: 042
     Dates: start: 20090511
  2. PROAIR HFA [Concomitant]
     Route: 055
  3. VENTOLIN [Concomitant]
     Route: 055
  4. AUGMENTIN '125' [Concomitant]
     Route: 048
  5. CALCIUM [Concomitant]
     Route: 048
  6. TUSSIONEX [Concomitant]
     Route: 048
  7. CLOBETASOL PROPIONATE [Concomitant]
     Route: 061
  8. DIAZEPAM [Concomitant]
     Route: 048
  9. LOMOTIL [Concomitant]
     Indication: DIARRHOEA
     Route: 048
  10. REGULAR PRIMROSE [Concomitant]
     Route: 048
  11. FLAXSEED OIL [Concomitant]
     Route: 048
  12. GUAIFENESIN [Concomitant]
     Route: 048
  13. NASONEX [Concomitant]
     Route: 045
  14. FISH OIL [Concomitant]
     Route: 048
  15. PHENERGAN [Concomitant]
     Indication: NAUSEA
     Route: 048
  16. PHENERGAN [Concomitant]
     Indication: VOMITING
     Route: 048
  17. ZANAFLEX [Concomitant]
     Route: 048
  18. DETROL [Concomitant]
     Route: 048
  19. VALTREX [Concomitant]
     Route: 048

REACTIONS (1)
  - CLOSTRIDIAL INFECTION [None]
